FAERS Safety Report 24224346 (Version 2)
Quarter: 2024Q3

REPORT INFORMATION
  Report Type: Spontaneous
  Country: US (occurrence: US)
  Receive Date: 20240819
  Receipt Date: 20240823
  Transmission Date: 20241017
  Serious: No
  Sender: ABBVIE
  Company Number: US-ABBVIE-5882958

PATIENT
  Sex: Female

DRUGS (1)
  1. BYSTOLIC [Suspect]
     Active Substance: NEBIVOLOL HYDROCHLORIDE
     Indication: Headache
     Dosage: START DATE WAS 2011 OR 2012.
     Route: 065

REACTIONS (4)
  - Off label use [Unknown]
  - Product use complaint [Unknown]
  - Eructation [Unknown]
  - Alopecia [Unknown]
